FAERS Safety Report 18973070 (Version 5)
Quarter: 2022Q1

REPORT INFORMATION
  Report Type: Report from Study
  Country: US (occurrence: US)
  Receive Date: 20210305
  Receipt Date: 20220112
  Transmission Date: 20220423
  Serious: Yes (Other)
  Sender: FDA-Public Use
  Company Number: NVSC2021US044552

PATIENT
  Age: 21 Year
  Sex: Female

DRUGS (2)
  1. GILENYA [Suspect]
     Active Substance: FINGOLIMOD HYDROCHLORIDE
     Indication: Multiple sclerosis
     Dosage: 0.5 MG, QD
     Route: 048
  2. DEPO-PROVERA [Suspect]
     Active Substance: MEDROXYPROGESTERONE ACETATE
     Indication: Product used for unknown indication
     Dosage: UNK (Q3 MOS)
     Route: 065
     Dates: start: 202011

REACTIONS (11)
  - Blindness [Unknown]
  - Multiple sclerosis relapse [Unknown]
  - Morning sickness [Unknown]
  - Hot flush [Unknown]
  - Feeling cold [Unknown]
  - Insomnia [Unknown]
  - Migraine [Not Recovered/Not Resolved]
  - White blood cell count decreased [Recovering/Resolving]
  - Sinusitis [Unknown]
  - Gastroenteritis viral [Unknown]
  - Therapeutic product effect delayed [Unknown]

NARRATIVE: CASE EVENT DATE: 20201101
